FAERS Safety Report 4658641-2 (Version None)
Quarter: 2005Q2

REPORT INFORMATION
  Report Type: 
  Country: None (occurrence: None)
  Receive Date: 20050509
  Receipt Date: 20050430
  Transmission Date: 20051028
  Serious: Yes (Death, Hospitalization, Other)
  Sender: FDA-Public Use
  Company Number: 163-20785-05030675

PATIENT
  Age: 73 Year
  Sex: Male
  Weight: 47 kg

DRUGS (17)
  1. THALOMID [Suspect]
     Indication: MULTIPLE MYELOMA
     Dosage: SEE IMAGE, ORAL
     Route: 048
     Dates: start: 20050201, end: 20050313
  2. THALOMID [Suspect]
     Indication: MULTIPLE MYELOMA
     Dosage: SEE IMAGE, ORAL
     Route: 048
     Dates: start: 20041030
  3. MELPHALAN (MELPHALAN) [Suspect]
     Indication: MULTIPLE MYELOMA
     Dosage: SEE IMAGE, INTRAVENOUS
     Route: 042
     Dates: start: 20050120, end: 20050120
  4. MELPHALAN (MELPHALAN) [Suspect]
     Indication: MULTIPLE MYELOMA
     Dosage: SEE IMAGE, INTRAVENOUS
     Route: 042
     Dates: start: 20050201, end: 20050313
  5. DEXAMETHASONE [Suspect]
     Indication: MULTIPLE MYELOMA
     Dosage: 20 MG, 4 DAYS Q 21 DAYS, ORAL
     Route: 048
     Dates: start: 20041030
  6. VELCADE [Suspect]
     Indication: MULTIPLE MYELOMA
     Dosage: FOR 2 CYCLES
     Dates: start: 20041030
  7. CISPLATIN [Suspect]
     Indication: MULTIPLE MYELOMA
     Dosage: FOR 2 CYCLES
     Dates: start: 20041030
  8. ADRIAMYCIN PFS [Suspect]
     Indication: MULTIPLE MYELOMA
     Dosage: FOR 2 CYCLES
     Dates: start: 20041030
  9. CYCLOPHOSPHAMIDE [Suspect]
     Indication: MULTIPLE MYELOMA
     Dosage: FOR 2 CYCLES
     Dates: start: 20041030
  10. ETOPOSIDE [Suspect]
     Indication: MULTIPLE MYELOMA
     Dosage: FOR 2 CYCLES
     Dates: start: 20041030
  11. FAMVIR [Concomitant]
  12. RANITIDINE [Concomitant]
  13. LISINOPRIL [Concomitant]
  14. CLONIDINE [Concomitant]
  15. OXYCODONE CR (OXYCODONE) [Concomitant]
  16. MAGNESIUM (MAGNESIUM) [Concomitant]
  17. LOVENOX [Concomitant]

REACTIONS (22)
  - ANAEMIA [None]
  - ARTHRALGIA [None]
  - ASTHENIA [None]
  - BLISTER [None]
  - DEEP VEIN THROMBOSIS [None]
  - DIASTOLIC DYSFUNCTION [None]
  - DISEASE RECURRENCE [None]
  - DYSPHAGIA [None]
  - EMPHYSEMA [None]
  - FEBRILE NEUTROPENIA [None]
  - FEELING COLD [None]
  - IMPLANT SITE SWELLING [None]
  - MUCOSAL INFLAMMATION [None]
  - OSTEOARTHRITIS [None]
  - PANCREATITIS CHRONIC [None]
  - PERIPHERAL BLOOD STEM CELL APHERESIS [None]
  - PHARYNGOLARYNGEAL PAIN [None]
  - POST PROCEDURAL HAEMATOMA [None]
  - SCAR [None]
  - SINUS BRADYCARDIA [None]
  - STEM CELL TRANSPLANT [None]
  - THROMBOCYTOPENIA [None]
